FAERS Safety Report 13869407 (Version 1)
Quarter: 2017Q3

REPORT INFORMATION
  Report Type: Spontaneous
  Country: GB (occurrence: GB)
  Receive Date: 20170815
  Receipt Date: 20170815
  Transmission Date: 20171127
  Serious: Yes (Hospitalization)
  Sender: FDA-Public Use
  Company Number: GB-PFIZER INC-2017346590

PATIENT
  Age: 26 Year
  Sex: Female

DRUGS (5)
  1. MOXIFLOXACIN. [Concomitant]
     Active Substance: MOXIFLOXACIN
     Dosage: UNK
  2. CEFTRIAXONE SODIUM. [Suspect]
     Active Substance: CEFTRIAXONE SODIUM
     Indication: MENINGITIS BACTERIAL
     Dosage: 2 G, 2X/DAY
     Route: 042
     Dates: start: 20170627, end: 20170630
  3. PYRAZINAMIDE. [Concomitant]
     Active Substance: PYRAZINAMIDE
     Dosage: UNK
  4. RIFAMPICIN SODIUM [Concomitant]
     Dosage: UNK
  5. ISONIAZIDE [Concomitant]
     Active Substance: ISONIAZID
     Dosage: UNK

REACTIONS (1)
  - Hepatitis [Recovered/Resolved]
